FAERS Safety Report 7084229-2 (Version None)
Quarter: 2010Q4

REPORT INFORMATION
  Report Type: 
  Country: None (occurrence: None)
  Receive Date: 20101104
  Receipt Date: 20101027
  Transmission Date: 20110411
  Serious: Yes (Other)
  Sender: FDA-Public Use
  Company Number: SE-PFIZER INC-2010136587

PATIENT
  Age: 68 Year
  Sex: Female

DRUGS (2)
  1. DALACIN [Suspect]
     Indication: PNEUMONIA
     Dosage: 300 MG, 3X/DAY
  2. TREO COMP [Concomitant]
     Dosage: UNK

REACTIONS (2)
  - EYE SWELLING [None]
  - YELLOW SKIN [None]
